FAERS Safety Report 4627137-6 (Version None)
Quarter: 2005Q2

REPORT INFORMATION
  Report Type: 
  Country: None (occurrence: None)
  Receive Date: 20050405
  Receipt Date: 20050314
  Transmission Date: 20051028
  Serious: Yes (Hospitalization)
  Sender: FDA-Public Use
  Company Number: US-GLAXOSMITHKLINE-A0549655A

PATIENT
  Age: 48 Year
  Sex: Female
  Weight: 59.1 kg

DRUGS (3)
  1. WELLBUTRIN XL [Suspect]
     Indication: MAJOR DEPRESSION
     Route: 048
     Dates: start: 20040804
  2. TRAZODONE HCL [Concomitant]
     Indication: SLEEP DISORDER
  3. NEURONTIN [Concomitant]
     Indication: SLEEP DISORDER
     Dosage: 300MG AS REQUIRED
     Dates: start: 20050110

REACTIONS (7)
  - AMNESIA [None]
  - CONVULSION [None]
  - DIZZINESS [None]
  - FALL [None]
  - HEAD INJURY [None]
  - LOSS OF CONSCIOUSNESS [None]
  - TREMOR [None]
